FAERS Safety Report 6156582-5 (Version None)
Quarter: 2009Q2

REPORT INFORMATION
  Report Type: 
  Country: None (occurrence: None)
  Receive Date: 20090416
  Receipt Date: 20090410
  Transmission Date: 20091009
  Serious: Yes (Hospitalization, Other)
  Sender: FDA-Public Use
  Company Number: US-AMGEN-US272606

PATIENT
  Sex: Male

DRUGS (33)
  1. ROMIPLOSTIM [Suspect]
     Indication: MYELODYSPLASTIC SYNDROME
     Route: 058
     Dates: start: 20061122, end: 20071205
  2. URSODIOL [Concomitant]
     Route: 048
     Dates: start: 20080320
  3. FLUCONAZOLE [Concomitant]
     Route: 048
     Dates: start: 20080320
  4. ACYCLOVIR [Concomitant]
     Route: 048
     Dates: start: 20080325
  5. SODIUM CHLORIDE [Concomitant]
     Route: 042
     Dates: start: 20080309
  6. MAGNESIUM SULFATE [Concomitant]
     Route: 042
     Dates: start: 20080309
  7. CYCLOSPORINE [Concomitant]
     Route: 048
     Dates: start: 20080223
  8. MYCOPHENOLATE MOFETIL [Concomitant]
     Route: 048
     Dates: start: 20080320
  9. CITALOPRAM HYDROBROMIDE [Concomitant]
     Route: 048
     Dates: start: 20080320
  10. OMEPRAZOLE [Concomitant]
     Route: 048
     Dates: start: 20080320
  11. COMPAZINE [Concomitant]
     Dates: start: 20080301
  12. BECLOMETHASONE DIPROPIONATE [Concomitant]
     Route: 048
  13. BUDESONIDE [Concomitant]
     Route: 048
  14. INSULIN LISPRO [Concomitant]
  15. MEGESTROL ACETATE [Concomitant]
     Route: 048
  16. PANTOPRAZOLE SODIUM [Concomitant]
     Route: 048
  17. PREDNISONE [Concomitant]
  18. UNSPECIFIED INTRAVENOUS FLUIDS [Concomitant]
     Route: 042
  19. CALCIUM GLUCONATE [Concomitant]
     Route: 042
  20. POTASSIUM CHLORIDE [Concomitant]
     Route: 042
  21. BACTRIM [Concomitant]
     Route: 048
  22. VALACYCLOVIR HYDROCHLORIDE [Concomitant]
     Route: 048
  23. MULTI-VITAMINS [Concomitant]
     Route: 048
  24. CALCIUM WITH VITAMIN D [Concomitant]
     Route: 048
  25. MAALOX [Concomitant]
     Route: 048
  26. CALCIUM CARBONATE [Concomitant]
     Route: 048
  27. DEXTROSE 50% IN WATER [Concomitant]
     Route: 042
  28. DIPHENHYDRAMINE HCL [Concomitant]
     Route: 048
  29. HYPROMELLOSE [Concomitant]
     Route: 047
  30. SKIN OINTMENT NOS [Concomitant]
  31. CELEXA [Concomitant]
  32. CYCLOSPORINE [Concomitant]
     Route: 048
  33. CYCLOSPORINE [Concomitant]
     Route: 048

REACTIONS (1)
  - INTERSTITIAL LUNG DISEASE [None]
